FAERS Safety Report 6176964-5 (Version None)
Quarter: 2009Q2

REPORT INFORMATION
  Report Type: 
  Country: None (occurrence: None)
  Receive Date: 20090501
  Receipt Date: 20090128
  Transmission Date: 20091009
  Serious: Yes (Other)
  Sender: FDA-Public Use
  Company Number: US-ALEXION-A200900047

PATIENT
  Sex: Female

DRUGS (6)
  1. SOLIRIS [Suspect]
     Indication: PAROXYSMAL NOCTURNAL HAEMOGLOBINURIA
     Dosage: 600 MG, QWK
     Route: 042
     Dates: start: 20090116
  2. COUMADIN [Concomitant]
     Indication: PROPHYLAXIS
     Dosage: UNK
     Route: 048
  3. VITAMINS                           /90003601/ [Concomitant]
     Indication: PRENATAL CARE
     Dosage: UNK
     Route: 048
  4. DECADRON [Concomitant]
     Indication: PROPHYLAXIS
     Dosage: 20 MG, X2DOSES
     Route: 048
     Dates: start: 20090123, end: 20090123
  5. DECADRON [Concomitant]
     Dosage: 10 MG, X1DOSE
     Route: 048
     Dates: start: 20090123, end: 20090123
  6. BENADRYL [Concomitant]
     Indication: PROPHYLAXIS

REACTIONS (4)
  - HEADACHE [None]
  - HYPERSENSITIVITY [None]
  - NAUSEA [None]
  - VOMITING [None]
